FAERS Safety Report 5028618-6 (Version None)
Quarter: 2006Q2

REPORT INFORMATION
  Report Type: 
  Country: None (occurrence: None)
  Receive Date: 20060501
  Receipt Date: 20060223
  Transmission Date: 20061013
  Serious: No
  Sender: FDA-Public Use
  Company Number: 200610975US

PATIENT
  Age: 61 Year
  Sex: Female
  Weight: 56.36 kg

DRUGS (7)
  1. KETEK [Suspect]
     Indication: LYME DISEASE
     Dosage: QD
     Dates: start: 20050601, end: 20060101
  2. CEFTRIAXONE [Suspect]
     Dosage: 4XW
  3. METRONIDAZOLE [Suspect]
  4. SYNTHROID [Concomitant]
  5. ACTONEL [Concomitant]
  6. AMBIEN [Concomitant]
  7. VITAMIN D [Concomitant]

REACTIONS (3)
  - ALANINE AMINOTRANSFERASE INCREASED [None]
  - CREATININE RENAL CLEARANCE DECREASED [None]
  - WHITE BLOOD CELL COUNT DECREASED [None]
